FAERS Safety Report 7583495-4 (Version None)
Quarter: 2011Q2

REPORT INFORMATION
  Report Type: 
  Country: None (occurrence: None)
  Receive Date: 20110630
  Receipt Date: 20110624
  Transmission Date: 20111010
  Serious: Yes (Other)
  Sender: FDA-Public Use
  Company Number: US-ROCHE-771265

PATIENT
  Sex: Male
  Weight: 83.9 kg

DRUGS (8)
  1. PLAVIX [Concomitant]
  2. ALLOPURINOL [Concomitant]
  3. FUROSEMIDE [Concomitant]
  4. ASPIRIN [Concomitant]
  5. COREG [Concomitant]
  6. ZANTAC [Concomitant]
  7. CELLCEPT [Suspect]
     Route: 048
     Dates: start: 20000320
  8. PROGRAF [Concomitant]

REACTIONS (1)
  - MYOCARDIAL INFARCTION [None]
